FAERS Safety Report 10868618 (Version 1)
Quarter: 2015Q1

REPORT INFORMATION
  Report Type: Spontaneous
  Country: US (occurrence: US)
  Receive Date: 20150225
  Receipt Date: 20150225
  Transmission Date: 20150721
  Serious: Yes (Other)
  Sender: FDA-Public Use
  Company Number: US-PFIZER INC-2015069028

PATIENT
  Age: 60 Year
  Sex: Male
  Weight: 125 kg

DRUGS (1)
  1. TIKOSYN [Suspect]
     Active Substance: DOFETILIDE
     Dosage: 250 ?G, 2X/DAY
     Dates: start: 2014

REACTIONS (2)
  - Cardiac aneurysm [Not Recovered/Not Resolved]
  - Depressed mood [Unknown]
